FAERS Safety Report 5429545-2 (Version None)
Quarter: 2007Q3

REPORT INFORMATION
  Report Type: 
  Country: None (occurrence: None)
  Receive Date: 20070829
  Receipt Date: 20070823
  Transmission Date: 20080115
  Serious: Yes (Life-Threatening)
  Sender: FDA-Public Use
  Company Number: GB-ELI_LILLY_AND_COMPANY-GB200708005456

PATIENT
  Age: 42 Year
  Sex: Male
  Weight: 96 kg

DRUGS (2)
  1. ZYPREXA [Suspect]
     Indication: MOOD DISORDER DUE TO A GENERAL MEDICAL CONDITION
     Dosage: 15 MG, UNKNOWN
     Route: 048
     Dates: start: 20010101, end: 20020201
  2. VALPROIC ACID [Concomitant]
     Indication: MOOD DISORDER DUE TO A GENERAL MEDICAL CONDITION
     Dosage: 1 G, 2/D
     Route: 048

REACTIONS (4)
  - EUTHANASIA [None]
  - HYPERLIPIDAEMIA [None]
  - OBESITY [None]
  - TENDON RUPTURE [None]
